FAERS Safety Report 23010096 (Version 9)
Quarter: 2024Q2

REPORT INFORMATION
  Report Type: Report from Study
  Country: US (occurrence: US)
  Receive Date: 20230929
  Receipt Date: 20240511
  Transmission Date: 20240716
  Serious: Yes (Hospitalization, Other)
  Sender: FDA-Public Use
  Company Number: US-SA-SAC20230928000181

PATIENT
  Age: 1 Year
  Sex: Male

DRUGS (6)
  1. EFTRENONACOG ALFA [Suspect]
     Active Substance: EFTRENONACOG ALFA
     Indication: Factor IX deficiency
     Dosage: 1250 UNITS (+/-10%), QD
     Route: 065
     Dates: start: 20230919
  2. EFTRENONACOG ALFA [Suspect]
     Active Substance: EFTRENONACOG ALFA
     Indication: Factor IX deficiency
     Dosage: 1250 UNITS (+/-10%), QD
     Route: 065
     Dates: start: 20230919
  3. EFTRENONACOG ALFA [Suspect]
     Active Substance: EFTRENONACOG ALFA
     Dosage: 500 U
     Route: 042
     Dates: start: 2023
  4. EFTRENONACOG ALFA [Suspect]
     Active Substance: EFTRENONACOG ALFA
     Dosage: 500 U
     Route: 042
     Dates: start: 2023
  5. EFTRENONACOG ALFA [Suspect]
     Active Substance: EFTRENONACOG ALFA
     Dosage: 1000 U
     Route: 042
     Dates: start: 2023
  6. EFTRENONACOG ALFA [Suspect]
     Active Substance: EFTRENONACOG ALFA
     Dosage: 1000 U
     Route: 042
     Dates: start: 2023

REACTIONS (19)
  - Urinary bladder haemorrhage [Unknown]
  - Infection [Not Recovered/Not Resolved]
  - Post procedural haemorrhage [Unknown]
  - Anti factor IX antibody positive [Unknown]
  - Staphylococcal infection [Unknown]
  - Device related infection [Recovering/Resolving]
  - Post procedural contusion [Unknown]
  - Contusion [Unknown]
  - Penile erythema [Unknown]
  - Haemorrhage [Recovered/Resolved]
  - Influenza [Unknown]
  - Laboratory test abnormal [Unknown]
  - Catheter site vesicles [Unknown]
  - Blood urine present [Not Recovered/Not Resolved]
  - Mouth injury [Unknown]
  - Tongue haemorrhage [Unknown]
  - Tongue injury [Unknown]
  - Circumcision [Unknown]
  - Drug ineffective [Unknown]

NARRATIVE: CASE EVENT DATE: 20230101
